FAERS Safety Report 15074057 (Version 1)
Quarter: 2018Q2

REPORT INFORMATION
  Report Type: Report from Study
  Country: US (occurrence: US)
  Receive Date: 20180627
  Receipt Date: 20180627
  Transmission Date: 20180711
  Serious: Yes (Hospitalization)
  Sender: FDA-Public Use
  Company Number: US-ROCHE-2145569

PATIENT
  Sex: Male
  Weight: 74 kg

DRUGS (2)
  1. ESBRIET [Suspect]
     Active Substance: PIRFENIDONE
     Route: 048
  2. ESBRIET [Suspect]
     Active Substance: PIRFENIDONE
     Indication: IDIOPATHIC PULMONARY FIBROSIS
     Dosage: DAYS 1-7, ONE TABLET THREE TIMES PER DAY ?DAYS 8-14, TWO TABLETS THREE TIMES PER DAY?THEREAFTER, 3 T
     Route: 048
     Dates: start: 201801

REACTIONS (1)
  - Atrial fibrillation [Unknown]
